FAERS Safety Report 11623009 (Version 1)
Quarter: 2015Q4

REPORT INFORMATION
  Report Type: Spontaneous
  Country: US (occurrence: US)
  Receive Date: 20151013
  Receipt Date: 20151013
  Transmission Date: 20160304
  Serious: No
  Sender: FDA-Public Use
  Company Number: US-JNJFOC-20150506442

PATIENT
  Age: 37 Year
  Sex: Female
  Weight: 47.63 kg

DRUGS (1)
  1. CHILDRENS TYLENOL [Suspect]
     Active Substance: ACETAMINOPHEN
     Indication: ARTHRALGIA
     Dosage: 80-160 MG DAILY, AS NEEDED FOR A COUPLE YEARS
     Route: 048

REACTIONS (2)
  - Wrong drug administered [Unknown]
  - Off label use [Unknown]
